FAERS Safety Report 9120054 (Version 1)
Quarter: 2013Q1

REPORT INFORMATION
  Report Type: Report from Study
  Country: JP (occurrence: JP)
  Receive Date: 20130226
  Receipt Date: 20130226
  Transmission Date: 20140127
  Serious: Yes (Hospitalization)
  Sender: FDA-Public Use
  Company Number: JP-009507513-1301JPN009986

PATIENT
  Age: 68 Year
  Sex: Male
  Weight: 163 kg

DRUGS (12)
  1. BLINDED EZETIMIBE (+) SIMVASTATIN [Suspect]
     Indication: HYPERCHOLESTEROLAEMIA
     Dosage: 10 MG, QD
     Route: 048
     Dates: start: 20121120
  2. BLINDED PLACEBO [Suspect]
     Indication: HYPERCHOLESTEROLAEMIA
     Dosage: 10 MG, QD
     Route: 048
     Dates: start: 20121120
  3. BLINDED POST TRIAL THERAPY [Suspect]
     Indication: HYPERCHOLESTEROLAEMIA
     Dosage: 10 MG, QD
     Route: 048
     Dates: start: 20121120
  4. JANUVIA TABLETS 50MG [Concomitant]
     Indication: DIABETES MELLITUS
     Dosage: 50 MG, QD
     Route: 048
     Dates: start: 20110428
  5. AMARYL [Concomitant]
     Indication: DIABETES MELLITUS
     Dosage: 1 MG, QD
     Route: 048
     Dates: start: 20110510
  6. METGLUCO [Concomitant]
     Indication: DIABETES MELLITUS
     Dosage: 250 MG IN THE MORNING, 500 MG IN THE EVENING
     Route: 048
     Dates: start: 20101122
  7. NORVASC [Concomitant]
     Indication: HYPERTENSION
     Dosage: 2.5 MG, QD
     Route: 048
     Dates: start: 20111122
  8. BLOPRESS [Concomitant]
     Indication: HYPERTENSION
     Dosage: 4 MG, QD
     Route: 048
     Dates: start: 20111124
  9. XALACOM [Concomitant]
     Dosage: 1 GTT, QD
     Route: 047
     Dates: start: 20121115
  10. CRAVIT [Concomitant]
     Dosage: 6 GTT, QD
     Route: 047
     Dates: start: 20130113, end: 20130114
  11. CRAVIT [Concomitant]
     Dosage: ONE DROP EVERY HOUR FROM GETTING UP TO GOING TO BED
     Route: 047
     Dates: start: 20130115, end: 20130115
  12. CRAVIT [Concomitant]
     Dosage: ONE DROP AFTER GETTING UP AND BEFORE OPERATION
     Route: 047
     Dates: start: 20130116, end: 20130116

REACTIONS (2)
  - Cataract [Recovered/Resolved]
  - Cataract [Recovering/Resolving]
